FAERS Safety Report 23112738 (Version 1)
Quarter: 2023Q4

REPORT INFORMATION
  Report Type: Spontaneous
  Country: JP (occurrence: JP)
  Receive Date: 20231027
  Receipt Date: 20231027
  Transmission Date: 20240110
  Serious: Yes (Death, Hospitalization, Other)
  Sender: FDA-Public Use
  Company Number: JP-PBT-008514

PATIENT
  Age: 63 Year
  Sex: Female

DRUGS (5)
  1. TACROLIMUS [Suspect]
     Active Substance: TACROLIMUS
     Indication: Dermatomyositis
     Route: 065
  2. METHYLPREDNISOLONE [Suspect]
     Active Substance: METHYLPREDNISOLONE
     Indication: Dermatomyositis
     Route: 065
  3. PREDNISOLONE [Suspect]
     Active Substance: PREDNISOLONE
     Indication: Dermatomyositis
     Route: 065
  4. CYCLOPHOSPHAMIDE [Suspect]
     Active Substance: CYCLOPHOSPHAMIDE
     Indication: Dermatomyositis
     Route: 065
  5. PREDNISOLONE [Suspect]
     Active Substance: PREDNISOLONE
     Indication: Dermatomyositis
     Dosage: TAPERED DOWN
     Route: 065

REACTIONS (9)
  - Febrile neutropenia [Unknown]
  - Bronchopulmonary aspergillosis [Unknown]
  - Condition aggravated [Fatal]
  - Product use in unapproved indication [Unknown]
  - Dermatomyositis [Fatal]
  - Pulmonary oedema [Unknown]
  - Psychiatric symptom [Unknown]
  - Haematuria [Unknown]
  - Drug level increased [Unknown]
